FAERS Safety Report 4562831-7 (Version None)
Quarter: 2005Q1

REPORT INFORMATION
  Report Type: 
  Country: None (occurrence: None)
  Receive Date: 20050127
  Receipt Date: 20050118
  Transmission Date: 20050727
  Serious: Yes (Other)
  Sender: FDA-Public Use
  Company Number: AU-GLAXOSMITHKLINE-B0365661A

PATIENT
  Sex: Female

DRUGS (3)
  1. VALTREX [Suspect]
     Route: 065
  2. LIPITOR [Concomitant]
     Route: 065
  3. EYE DROPS [Concomitant]
     Route: 065

REACTIONS (2)
  - MOLE EXCISION [None]
  - PIGMENTED NAEVUS [None]
